FAERS Safety Report 4780186-X (Version None)
Quarter: 2005Q3

REPORT INFORMATION
  Report Type: 
  Country: None (occurrence: None)
  Receive Date: 20050927
  Receipt Date: 20050411
  Transmission Date: 20060218
  Serious: Yes (Other)
  Sender: FDA-Public Use
  Company Number: DE-SANOFI-SYNTHELABO-A04200500343

PATIENT
  Sex: Female
  Weight: 70 kg

DRUGS (4)
  1. ELOXATIN [Suspect]
     Indication: COLON CANCER
     Route: 041
     Dates: start: 20050307, end: 20050307
  2. XELODA [Concomitant]
     Indication: COLON CANCER
     Dosage: UNK
     Route: 048
  3. ZOFRAN [Concomitant]
     Indication: DRUG USE FOR UNKNOWN INDICATION
     Dosage: UNK
     Route: 065
  4. FORTECORTIN [Concomitant]
     Indication: DRUG USE FOR UNKNOWN INDICATION
     Dosage: UNK
     Route: 065

REACTIONS (4)
  - COORDINATION ABNORMAL [None]
  - DYSPNOEA [None]
  - EYELID PTOSIS [None]
  - LARYNGOSPASM [None]
